FAERS Safety Report 8795707 (Version 2)
Quarter: 2013Q2

REPORT INFORMATION
  Report Type: Spontaneous
  Country: DE (occurrence: DE)
  Receive Date: 20120919
  Receipt Date: 20130426
  Transmission Date: 20140414
  Serious: Yes (Congenital Anomaly)
  Sender: FDA-Public Use
  Company Number: DE-RANBAXY-2012RR-59889

PATIENT
  Sex: Male
  Weight: 3 kg

DRUGS (3)
  1. FLUOXETINE [Suspect]
     Indication: MATERNAL EXPOSURE TIMING UNSPECIFIED
     Dosage: 40 MG/DAY, SLOW DOSAGE REDUCTION UNTIL 10 MG AND THEN STOP SHORTLY BEFORE DELIVERY
     Route: 064
     Dates: start: 20091113, end: 20100807
  2. FOLIO FORTE [Concomitant]
     Dosage: 0.8 MG/DAY, 0.-27. GESTATIONAL WEEK
     Route: 064
  3. UTROGEST [Concomitant]
     Dosage: 200 MG/DAY, 32.0.-35.0. GESTATIONAL WEEK
     Route: 064
     Dates: start: 20100625

REACTIONS (1)
  - Atrial septal defect [Unknown]
